FAERS Safety Report 18341184 (Version 1)
Quarter: 2020Q4

REPORT INFORMATION
  Report Type: Spontaneous
  Country: IT (occurrence: IT)
  Receive Date: 20201003
  Receipt Date: 20201003
  Transmission Date: 20210113
  Serious: No
  Sender: FDA-Public Use
  Company Number: IT-LUPIN PHARMACEUTICALS INC.-2020-04428

PATIENT
  Age: 3 Year

DRUGS (2)
  1. BETAMETHASONE. [Suspect]
     Active Substance: BETAMETHASONE
     Indication: HENOCH-SCHONLEIN PURPURA
     Dosage: UNK UNK, QD (0.1-0.2 MG/KG)
     Route: 048
  2. BETAMETHASONE. [Suspect]
     Active Substance: BETAMETHASONE
     Dosage: UNK UNK, QD (0.1-0.2 MG/KG)
     Route: 042

REACTIONS (1)
  - Drug ineffective [Unknown]
